FAERS Safety Report 20942019 (Version 1)
Quarter: 2022Q2

REPORT INFORMATION
  Report Type: Report from Study
  Country: US (occurrence: US)
  Receive Date: 20220610
  Receipt Date: 20220610
  Transmission Date: 20220721
  Serious: Yes (Other)
  Sender: FDA-Public Use
  Company Number: US-HBP-2022US026561

PATIENT
  Age: 75 Year
  Sex: Female

DRUGS (1)
  1. TRUSELTIQ [Suspect]
     Active Substance: INFIGRATINIB
     Indication: Cholangiocarcinoma
     Dosage: 50 MILLIGRAM, QD
     Route: 048
     Dates: start: 202204, end: 20220412

REACTIONS (3)
  - Dyspnoea [Recovered/Resolved]
  - Lip pain [Recovered/Resolved]
  - Off label use [Unknown]

NARRATIVE: CASE EVENT DATE: 20220401
